FAERS Safety Report 8517483-8 (Version None)
Quarter: 2012Q3

REPORT INFORMATION
  Report Type: 
  Country: None (occurrence: None)
  Receive Date: 20120718
  Receipt Date: 20120713
  Transmission Date: 20120928
  Serious: Yes (Disabling, Other)
  Sender: FDA-Public Use
  Company Number: US-ROCHE-1073224

PATIENT
  Sex: Male
  Weight: 75.818 kg

DRUGS (1)
  1. ZELBORAF [Suspect]
     Indication: MALIGNANT MELANOMA
     Route: 048
     Dates: start: 20120522

REACTIONS (17)
  - DECREASED APPETITE [None]
  - RASH [None]
  - VISUAL IMPAIRMENT [None]
  - COUGH [None]
  - PRURITUS [None]
  - DISEASE PROGRESSION [None]
  - DIARRHOEA [None]
  - FATIGUE [None]
  - METASTASES TO LYMPH NODES [None]
  - CHROMATURIA [None]
  - NAUSEA [None]
  - THROAT IRRITATION [None]
  - ABDOMINAL PAIN UPPER [None]
  - SWELLING [None]
  - SALIVARY HYPERSECRETION [None]
  - DYSPHAGIA [None]
  - SKIN PAPILLOMA [None]
